FAERS Safety Report 10142966 (Version 1)
Quarter: 2014Q2

REPORT INFORMATION
  Report Type: Spontaneous
  Country: US (occurrence: None)
  Receive Date: 20140428
  Receipt Date: 20140428
  Transmission Date: 20141212
  Serious: Yes (Hospitalization)
  Sender: FDA-Public Use
  Company Number: None

PATIENT
  Age: 79 Year
  Sex: Female
  Weight: 53.7 kg

DRUGS (7)
  1. PASIREORIDE [Suspect]
     Indication: PAPILLARY THYROID CANCER
     Route: 030
     Dates: start: 20140403
  2. EVEROLIMUS [Suspect]
     Dates: start: 20140403
  3. CALCIUM [Concomitant]
  4. CIPRO [Concomitant]
  5. IMODIUM A-D [Concomitant]
  6. BENTYL [Concomitant]
  7. LANTUS [Concomitant]

REACTIONS (1)
  - Rib fracture [None]
